FAERS Safety Report 9721258 (Version 1)
Quarter: 2013Q4

REPORT INFORMATION
  Report Type: Spontaneous
  Country: US (occurrence: US)
  Receive Date: 20131129
  Receipt Date: 20131129
  Transmission Date: 20140711
  Serious: No
  Sender: FDA-Public Use
  Company Number: US-PFIZER INC-2013339415

PATIENT
  Sex: Female

DRUGS (2)
  1. TIKOSYN [Suspect]
     Indication: ATRIAL FIBRILLATION
     Dosage: 250 UG, 2X/DAY
     Route: 048
     Dates: start: 201304
  2. TIKOSYN [Suspect]
     Indication: ATRIAL FLUTTER

REACTIONS (5)
  - Drug effect incomplete [Unknown]
  - Sinus arrhythmia [Recovered/Resolved]
  - Fall [Unknown]
  - Joint injury [Unknown]
  - Osteoarthritis [Unknown]
